FAERS Safety Report 6384805-6 (Version None)
Quarter: 2009Q4

REPORT INFORMATION
  Report Type: 
  Country: None (occurrence: None)
  Receive Date: 20091001
  Receipt Date: 20090921
  Transmission Date: 20100525
  Serious: Yes (Other)
  Sender: FDA-Public Use
  Company Number: US-ELI_LILLY_AND_COMPANY-US200909004851

PATIENT
  Sex: Female

DRUGS (3)
  1. ZYPREXA [Suspect]
  2. CARBAMAZEPINE [Concomitant]
  3. CLOZAPINE [Concomitant]
     Dosage: 25 MG, UNK

REACTIONS (2)
  - CONVULSION [None]
  - GRANULOCYTOPENIA [None]
